FAERS Safety Report 6542460-6 (Version None)
Quarter: 2010Q1

REPORT INFORMATION
  Report Type: 
  Country: None (occurrence: None)
  Receive Date: 20100119
  Receipt Date: 20100107
  Transmission Date: 20100710
  Serious: Yes (Other)
  Sender: FDA-Public Use
  Company Number: CA-PFIZER INC-2010003158

PATIENT
  Age: 63 Year
  Sex: Male

DRUGS (5)
  1. DILANTIN [Suspect]
     Dosage: 200 MG (100MG X2 CAPSULES), 2X/DAY
     Dates: start: 19700101
  2. ZOLADEX [Concomitant]
     Dosage: UNK
     Dates: start: 20090201
  3. CASODEX [Concomitant]
     Dosage: 50 MG, UNK
     Dates: start: 20090101
  4. ADVIL [Concomitant]
     Dosage: UNK
  5. VITAMIN D [Concomitant]
     Dosage: UNK

REACTIONS (5)
  - ANTICONVULSANT DRUG LEVEL BELOW THERAPEUTIC [None]
  - ANTICONVULSANT DRUG LEVEL INCREASED [None]
  - CONVULSION [None]
  - PRODUCT QUALITY ISSUE [None]
  - PRODUCT SUBSTITUTION ISSUE [None]
